FAERS Safety Report 7656044-X (Version None)
Quarter: 2011Q3

REPORT INFORMATION
  Report Type: 
  Country: None (occurrence: None)
  Receive Date: 20110804
  Receipt Date: 20110722
  Transmission Date: 20111222
  Serious: Yes (Hospitalization)
  Sender: FDA-Public Use
  Company Number: US-ELI_LILLY_AND_COMPANY-US201105004398

PATIENT
  Sex: Male

DRUGS (1)
  1. ZYPREXA [Suspect]
     Indication: DEVELOPMENTAL DELAY
     Dosage: 27.5 MG, UNK

REACTIONS (5)
  - OVERDOSE [None]
  - CONDITION AGGRAVATED [None]
  - OFF LABEL USE [None]
  - AGGRESSION [None]
  - LACERATION [None]
